FAERS Safety Report 25252807 (Version 2)
Quarter: 2025Q2

REPORT INFORMATION
  Report Type: Report from Study
  Country: GB (occurrence: GB)
  Receive Date: 20250429
  Receipt Date: 20250611
  Transmission Date: 20250716
  Serious: Yes (Hospitalization)
  Sender: ABBVIE
  Company Number: GB-ABBVIE-6245758

PATIENT
  Sex: Female

DRUGS (1)
  1. SKYRIZI [Suspect]
     Active Substance: RISANKIZUMAB-RZAA
     Indication: Crohn^s disease
     Dosage: STRENGTH-360MG/2.4ML
     Route: 058
     Dates: start: 20241001, end: 2025

REACTIONS (9)
  - Oropharyngeal pain [Unknown]
  - Anxiety [Unknown]
  - Depressed mood [Unknown]
  - Chest pain [Unknown]
  - Injection site mass [Unknown]
  - Inflammatory marker increased [Unknown]
  - Aphonia [Unknown]
  - Fatigue [Unknown]
  - Injection related reaction [Unknown]
